FAERS Safety Report 7519176-2 (Version None)
Quarter: 2011Q2

REPORT INFORMATION
  Report Type: 
  Country: None (occurrence: None)
  Receive Date: 20110602
  Receipt Date: 20090403
  Transmission Date: 20111010
  Serious: Yes (Other)
  Sender: FDA-Public Use
  Company Number: US-BAYER-200922731NA

PATIENT
  Age: 40 Year
  Sex: Male
  Weight: 73 kg

DRUGS (10)
  1. TRASYLOL [Suspect]
     Indication: CORONARY ARTERY BYPASS
     Dosage: 200 ML BOLUS THEN 25CC/HOUR
     Route: 042
     Dates: start: 20031017, end: 20031017
  2. PROCARDIA XL [Concomitant]
     Dosage: 90 MG, QD
     Dates: start: 20000101
  3. ACETYLSALICYLIC ACID SRT [Concomitant]
     Dosage: 1 TABLET DAILY
     Dates: start: 20031015
  4. IBUPROFEN [Concomitant]
     Dosage: 800 MG, QD
     Dates: start: 20011120, end: 20030219
  5. LOTENSIN [Concomitant]
     Dosage: 40 MG, QD
  6. MANNITOL [Concomitant]
     Dosage: 12.5GM/50 ML
  7. CARDURA [Concomitant]
     Dosage: 4 MG, QD
  8. HEPARIN [Concomitant]
     Dosage: 10,000U
  9. SIMVASTATIN [Concomitant]
     Dosage: 20 MG, QD
     Dates: start: 20031015
  10. ZINACEF [Concomitant]
     Dosage: 1.5GM

REACTIONS (11)
  - RENAL IMPAIRMENT [None]
  - UNEVALUABLE EVENT [None]
  - PAIN [None]
  - STRESS [None]
  - RENAL FAILURE [None]
  - ANXIETY [None]
  - RENAL INJURY [None]
  - FEAR [None]
  - ANHEDONIA [None]
  - EMOTIONAL DISTRESS [None]
  - INJURY [None]
